FAERS Safety Report 4469160-0 (Version None)
Quarter: 2004Q4

REPORT INFORMATION
  Report Type: 
  Country: None (occurrence: None)
  Receive Date: 20041005
  Receipt Date: 20041005
  Transmission Date: 20050328
  Serious: Yes (Death)
  Sender: FDA-Public Use
  Company Number: None

PATIENT
  Sex: Male
  Weight: 66 kg

DRUGS (10)
  1. GEMCITABINE [Suspect]
     Indication: PANCREATIC CARCINOMA
     Dosage: 1000 MG/M2 WKLY IV
     Route: 042
     Dates: start: 20040806, end: 20040910
  2. SPIRONOLACTONE [Concomitant]
  3. TEQUIN [Concomitant]
  4. OXYCODONE HCL [Concomitant]
  5. ATIVAN [Concomitant]
  6. HALDOL [Concomitant]
  7. RITALIN [Concomitant]
  8. REGLAN [Concomitant]
  9. PROTONIX [Concomitant]
  10. MIRALAX [Concomitant]

REACTIONS (4)
  - GENERAL PHYSICAL HEALTH DETERIORATION [None]
  - PANCREATIC CARCINOMA [None]
  - PERFORMANCE STATUS DECREASED [None]
  - PNEUMONIA [None]
